FAERS Safety Report 16839076 (Version 1)
Quarter: 2019Q3

REPORT INFORMATION
  Report Type: Spontaneous
  Country: US (occurrence: US)
  Receive Date: 20190731
  Receipt Date: 20190731
  Transmission Date: 20191005
  Serious: No
  Sender: FDA-Public Use
  Company Number: None

PATIENT

DRUGS (2)
  1. TACROLIMUS. [Suspect]
     Active Substance: TACROLIMUS
  2. SODIUM CHLORIDE 0.9% SOLUTION [Suspect]
     Active Substance: SODIUM CHLORIDE
     Route: 042

REACTIONS (6)
  - Product appearance confusion [None]
  - Product preparation issue [None]
  - Product label confusion [None]
  - Product administration error [None]
  - Product design issue [None]
  - Product dispensing error [None]
